FAERS Safety Report 13023017 (Version 1)
Quarter: 2016Q4

REPORT INFORMATION
  Report Type: Spontaneous
  Country: US (occurrence: US)
  Receive Date: 20161213
  Receipt Date: 20161213
  Transmission Date: 20170207
  Serious: Yes (Hospitalization)
  Sender: FDA-Public Use
  Company Number: US-BEH-2016075892

PATIENT
  Sex: Female
  Weight: 88.44 kg

DRUGS (29)
  1. SPIRIVA [Concomitant]
     Active Substance: TIOTROPIUM BROMIDE MONOHYDRATE
  2. NORETHINDRONE                      /00044901/ [Concomitant]
     Active Substance: NORETHINDRONE
  3. PERCOCET                           /00446701/ [Concomitant]
     Active Substance: ACETAMINOPHEN\OXYCODONE HYDROCHLORIDE\OXYCODONE TEREPHTHALATE
  4. PRAVASTATIN. [Concomitant]
     Active Substance: PRAVASTATIN
  5. SPIRONOLACTONE. [Concomitant]
     Active Substance: SPIRONOLACTONE
  6. ASPIRIN. [Concomitant]
     Active Substance: ASPIRIN
  7. PREDNISONE. [Concomitant]
     Active Substance: PREDNISONE
  8. PROZAC [Concomitant]
     Active Substance: FLUOXETINE HYDROCHLORIDE
  9. ALBUTEROL                          /00139501/ [Concomitant]
     Active Substance: ALBUTEROL
  10. LOSARTAN. [Concomitant]
     Active Substance: LOSARTAN
  11. PROAIR HFA [Concomitant]
     Active Substance: ALBUTEROL SULFATE
  12. SPIRONOLACTONE. [Concomitant]
     Active Substance: SPIRONOLACTONE
  13. HIZENTRA [Suspect]
     Active Substance: HUMAN IMMUNOGLOBULIN G
     Indication: IMMUNODEFICIENCY COMMON VARIABLE
     Dosage: 10 G, UNK
     Route: 058
     Dates: start: 20110819
  14. KLOR-CON [Concomitant]
     Active Substance: POTASSIUM CHLORIDE
  15. DIPHENHYDRAMINE. [Concomitant]
     Active Substance: DIPHENHYDRAMINE
  16. AMIODARONE [Concomitant]
     Active Substance: AMIODARONE
  17. LEVOFLOXACIN. [Concomitant]
     Active Substance: LEVOFLOXACIN
  18. EPIPEN [Concomitant]
     Active Substance: EPINEPHRINE
  19. GEMFIBROZIL. [Concomitant]
     Active Substance: GEMFIBROZIL
  20. ACETAMINOPHEN. [Concomitant]
     Active Substance: ACETAMINOPHEN
  21. LMX                                /00033401/ [Concomitant]
  22. DOXYCYCLINE. [Concomitant]
     Active Substance: DOXYCYCLINE
  23. ADVAIR HFA [Concomitant]
     Active Substance: FLUTICASONE PROPIONATE\SALMETEROL XINAFOATE
  24. FUROSEMIDE. [Concomitant]
     Active Substance: FUROSEMIDE
  25. METOPROLOL. [Concomitant]
     Active Substance: METOPROLOL
  26. XARELTO [Concomitant]
     Active Substance: RIVAROXABAN
  27. LANTUS [Concomitant]
     Active Substance: INSULIN GLARGINE
  28. FLONASE [Concomitant]
     Active Substance: FLUTICASONE PROPIONATE
  29. GABAPENTIN. [Concomitant]
     Active Substance: GABAPENTIN

REACTIONS (3)
  - Hip surgery [Unknown]
  - Thrombosis [Unknown]
  - Hip fracture [Unknown]
